FAERS Safety Report 11104309 (Version 2)
Quarter: 2015Q2

REPORT INFORMATION
  Report Type: Report from Study
  Country: US (occurrence: US)
  Receive Date: 20150511
  Receipt Date: 20150623
  Transmission Date: 20150821
  Serious: Yes (Death)
  Sender: FDA-Public Use
  Company Number: US-SA-2015SA061109

PATIENT
  Age: 72 Year
  Sex: Female

DRUGS (1)
  1. RENVELA [Suspect]
     Active Substance: SEVELAMER CARBONATE
     Route: 048

REACTIONS (1)
  - Intestinal perforation [Fatal]

NARRATIVE: CASE EVENT DATE: 20141011
